FAERS Safety Report 5836144-7 (Version None)
Quarter: 2008Q3

REPORT INFORMATION
  Report Type: 
  Country: None (occurrence: None)
  Receive Date: 20080805
  Receipt Date: 20080724
  Transmission Date: 20090109
  Serious: Yes (Hospitalization)
  Sender: FDA-Public Use
  Company Number: 2008SP013310

PATIENT
  Age: 55 Year
  Sex: Female

DRUGS (2)
  1. REBETOL [Suspect]
     Indication: HEPATITIS C
     Dates: start: 20050803, end: 20051220
  2. PEGASYS [Suspect]
     Indication: HEPATITIS C
     Dates: start: 20050803, end: 20051220

REACTIONS (5)
  - BACTERIA BLOOD IDENTIFIED [None]
  - CONFUSIONAL STATE [None]
  - DIARRHOEA [None]
  - HYPERPYREXIA [None]
  - NAUSEA [None]
